FAERS Safety Report 5197124-0 (Version None)
Quarter: 2007Q1

REPORT INFORMATION
  Report Type: 
  Country: None (occurrence: None)
  Receive Date: 20070103
  Receipt Date: 20070102
  Transmission Date: 20070707
  Serious: Yes (Other)
  Sender: FDA-Public Use
  Company Number: US-GLAXOSMITHKLINE-A0623405A

PATIENT
  Age: 72 Year
  Sex: Female

DRUGS (5)
  1. ADVAIR DISKUS 100/50 [Suspect]
     Indication: CHRONIC OBSTRUCTIVE PULMONARY DISEASE
     Dosage: 1PUFF TWICE PER DAY
     Route: 055
  2. OXYGEN [Concomitant]
  3. ALBUTEROL [Concomitant]
  4. NEURONTIN [Concomitant]
  5. PREDNISONE TAB [Concomitant]

REACTIONS (3)
  - CHEILITIS [None]
  - DYSPNOEA [None]
  - ORAL CANDIDIASIS [None]
